FAERS Safety Report 9169604 (Version 1)
Quarter: 2013Q1

REPORT INFORMATION
  Report Type: Spontaneous
  Country: US (occurrence: US)
  Receive Date: 20130318
  Receipt Date: 20130318
  Transmission Date: 20140127
  Serious: Yes (Hospitalization, Other)
  Sender: FDA-Public Use
  Company Number: US-ELI_LILLY_AND_COMPANY-US201303004473

PATIENT
  Sex: Male

DRUGS (7)
  1. CIALIS [Suspect]
     Indication: URINE FLOW DECREASED
     Dosage: 5 MG, QD
     Route: 048
     Dates: start: 201301, end: 20130217
  2. SINGULAIR [Concomitant]
     Dosage: UNK
  3. ATENOLOL [Concomitant]
     Dosage: UNK
  4. ALLOPURINOL [Concomitant]
     Dosage: UNK
  5. LOVAZA [Concomitant]
     Dosage: UNK
  6. BENICAR [Concomitant]
     Dosage: UNK
  7. GABAPENTIN [Concomitant]
     Dosage: UNK

REACTIONS (4)
  - Anaemia [Unknown]
  - Deafness unilateral [Unknown]
  - Thyroid disorder [Unknown]
  - Faeces discoloured [Unknown]
